FAERS Safety Report 5056972-8 (Version None)
Quarter: 2006Q2

REPORT INFORMATION
  Report Type: 
  Country: None (occurrence: None)
  Receive Date: 20060622
  Receipt Date: 20050615
  Transmission Date: 20061013
  Serious: Yes (Other)
  Sender: FDA-Public Use
  Company Number: US-JNJFOC-20050604775

PATIENT
  Age: 50 Year
  Sex: Female
  Weight: 95.2554 kg

DRUGS (8)
  1. FENTANYL TRANSDERMAL SYSTEM [Suspect]
     Indication: PAIN
     Dosage: 50 UG/HR, 1 IN 72 HOUR, TRANSDERMAL
     Route: 062
     Dates: start: 20050401, end: 20050401
  2. ATACAND (TABLETS) CANDESARTAN CILEXETIL [Concomitant]
  3. CLONAZEPAM (TABLETS) CLONAZEPAM [Concomitant]
  4. ESTRATEST (ESTRATEST HS) TABLETS [Concomitant]
  5. ZOLOFT [Concomitant]
  6. SYNTHROID (LEVOTHYROXINE SODIUM) TABLETS [Concomitant]
  7. HYDROCHLOROTHIAZIDE (HYDROCHLOROTHIAZIDE)TABLETS [Concomitant]
  8. STARLIX (NATEGLINIDE)TABLETS [Concomitant]

REACTIONS (3)
  - DYSPNOEA [None]
  - OVERDOSE [None]
  - VISION BLURRED [None]
